FAERS Safety Report 7957181-2 (Version None)
Quarter: 2011Q4

REPORT INFORMATION
  Report Type: 
  Country: None (occurrence: None)
  Receive Date: 20111205
  Receipt Date: 20111121
  Transmission Date: 20120403
  Serious: Yes (Hospitalization, Other)
  Sender: FDA-Public Use
  Company Number: JP-ROCHE-789964

PATIENT
  Age: 49 Year
  Sex: Female

DRUGS (29)
  1. MYCOPHENOLATE MOFETIL (CELLCEPT) [Suspect]
     Route: 048
     Dates: start: 20040214, end: 20040218
  2. SULFAMETHOXAZOLE AND TRIMETHOPRIM [Concomitant]
     Route: 048
  3. DIFLUCAN [Concomitant]
     Route: 048
  4. MYCOPHENOLATE MOFETIL (CELLCEPT) [Suspect]
     Route: 048
     Dates: start: 20040701, end: 20060101
  5. MYCOPHENOLATE MOFETIL (CELLCEPT) [Suspect]
     Route: 048
     Dates: start: 20060706, end: 20060813
  6. NORVASC [Concomitant]
     Route: 048
  7. MYCOPHENOLATE MOFETIL (CELLCEPT) [Suspect]
     Route: 048
     Dates: start: 20060814, end: 20080611
  8. ENALAPRIL MALEATE [Concomitant]
     Route: 048
     Dates: start: 20040211, end: 20050101
  9. LIPITOR [Concomitant]
     Route: 048
  10. FERROUS CITRATE [Concomitant]
     Route: 048
  11. MYCOPHENOLATE MOFETIL (CELLCEPT) [Suspect]
     Route: 048
  12. MYCOPHENOLATE MOFETIL (CELLCEPT) [Suspect]
     Route: 048
     Dates: start: 20060323, end: 20060419
  13. RABEPRAZOLE SODIUM [Concomitant]
     Route: 048
  14. MYCOPHENOLATE MOFETIL (CELLCEPT) [Suspect]
     Route: 048
     Dates: start: 20040225, end: 20040630
  15. PREDNISOLONE [Suspect]
     Route: 048
     Dates: start: 20060101, end: 20070115
  16. MYCOPHENOLATE MOFETIL (CELLCEPT) [Suspect]
     Route: 048
     Dates: start: 20040219, end: 20040224
  17. MYCOPHENOLATE MOFETIL (CELLCEPT) [Suspect]
     Route: 048
     Dates: start: 20080612, end: 20080723
  18. PREDNISOLONE [Suspect]
     Indication: PROPHYLAXIS AGAINST TRANSPLANT REJECTION
     Route: 048
     Dates: start: 20040213, end: 20060101
  19. ASPIRIN [Concomitant]
     Dosage: FORM: ENTERIC COATING DRUG.
     Route: 048
  20. MAGNESIUM OXIDE [Concomitant]
     Route: 048
  21. CYCLOPHOSPHAMIDE [Suspect]
     Indication: PROPHYLAXIS AGAINST TRANSPLANT REJECTION
     Route: 048
  22. ZOVIRAX [Concomitant]
     Route: 048
  23. ALENDRONATE SODIUM [Concomitant]
     Route: 048
  24. MYCOPHENOLATE MOFETIL (CELLCEPT) [Suspect]
     Indication: PROPHYLAXIS AGAINST TRANSPLANT REJECTION
     Route: 048
     Dates: start: 20040209, end: 20040213
  25. MYCOPHENOLATE MOFETIL (CELLCEPT) [Suspect]
     Route: 048
     Dates: start: 20060420, end: 20060705
  26. VALCYTE [Suspect]
     Indication: PROPHYLAXIS AGAINST TRANSPLANT REJECTION
     Route: 048
  27. SOLU-MEDROL [Concomitant]
     Route: 042
     Dates: start: 20040206, end: 20040212
  28. ALENDRONATE SODIUM [Concomitant]
     Route: 048
  29. URINORM [Concomitant]
     Route: 048

REACTIONS (4)
  - EPSTEIN-BARR VIRUS TEST POSITIVE [None]
  - FOOT FRACTURE [None]
  - CYTOMEGALOVIRUS VIRAEMIA [None]
  - WHITE BLOOD CELL COUNT DECREASED [None]
